FAERS Safety Report 24978841 (Version 5)
Quarter: 2025Q3

REPORT INFORMATION
  Report Type: Spontaneous
  Country: US (occurrence: US)
  Receive Date: 20250218
  Receipt Date: 20250903
  Transmission Date: 20251021
  Serious: No
  Sender: BIOGEN
  Company Number: US-BIOGEN-2025BI01300556

PATIENT
  Sex: Female

DRUGS (9)
  1. VUMERITY [Suspect]
     Active Substance: DIROXIMEL FUMARATE
     Indication: Relapsing-remitting multiple sclerosis
     Dosage: STARTING DOSE
     Route: 050
     Dates: start: 20230605
  2. VUMERITY [Suspect]
     Active Substance: DIROXIMEL FUMARATE
     Dosage: MAINTENANCE DOSE
     Route: 050
  3. SYNTHROID [Concomitant]
     Active Substance: LEVOTHYROXINE SODIUM
     Route: 050
  4. PERCOCET [Concomitant]
     Active Substance: ACETAMINOPHEN\OXYCODONE HYDROCHLORIDE
     Route: 050
  5. VALIUM [Concomitant]
     Active Substance: DIAZEPAM
     Route: 050
  6. VITAMIN D [Concomitant]
     Active Substance: VITAMIN D NOS
     Route: 050
  7. FOLIC ACID [Concomitant]
     Active Substance: FOLIC ACID
     Route: 050
  8. GNP POTASSIUM [Concomitant]
     Route: 050
  9. MODAFINIL [Concomitant]
     Active Substance: MODAFINIL
     Route: 050

REACTIONS (6)
  - Presyncope [Unknown]
  - Dermal cyst [Unknown]
  - Pancreatic disorder [Unknown]
  - Gastrointestinal disorder [Unknown]
  - Stomatitis [Recovered/Resolved]
  - Nasal ulcer [Recovered/Resolved]
